FAERS Safety Report 8997747 (Version 1)
Quarter: 2013Q1

REPORT INFORMATION
  Report Type: Report from Study
  Country: CH (occurrence: CH)
  Receive Date: 20130104
  Receipt Date: 20130104
  Transmission Date: 20140127
  Serious: Yes (Death, Other)
  Sender: FDA-Public Use
  Company Number: CH-UCBSA-074089

PATIENT
  Age: 55 Year
  Sex: Female

DRUGS (3)
  1. LEVETIRACETAM [Suspect]
     Indication: STATUS EPILEPTICUS
  2. LAMOTRIGINE [Suspect]
     Indication: STATUS EPILEPTICUS
  3. VALPROIC ACID [Suspect]
     Indication: STATUS EPILEPTICUS

REACTIONS (3)
  - Brain oedema [Fatal]
  - Autonomic nervous system imbalance [Fatal]
  - Drug ineffective for unapproved indication [Unknown]
